FAERS Safety Report 24027784 (Version 1)
Quarter: 2024Q2

REPORT INFORMATION
  Report Type: Spontaneous
  Country: US (occurrence: US)
  Receive Date: 20240628
  Receipt Date: 20240628
  Transmission Date: 20240716
  Serious: Yes (Hospitalization, Other)
  Sender: FDA-Public Use
  Company Number: US-MLMSERVICE-20240612-PI096223-00030-1

PATIENT
  Age: 38 Year
  Sex: Male

DRUGS (2)
  1. ACETAMINOPHEN [Suspect]
     Active Substance: ACETAMINOPHEN
     Indication: Pain management
     Dosage: LARGE, UNKNOWN QUANTITIES
     Route: 065
  2. IBUPROFEN [Suspect]
     Active Substance: IBUPROFEN
     Indication: Pain management
     Dosage: LARGE, UNKNOWN QUANTITIES
     Route: 065

REACTIONS (8)
  - Renal tubular necrosis [Recovering/Resolving]
  - Overdose [Unknown]
  - Toxicity to various agents [Unknown]
  - Liver injury [Recovering/Resolving]
  - Abdominal pain [Unknown]
  - Vomiting [Unknown]
  - Ocular icterus [Unknown]
  - Abdominal tenderness [Unknown]
